FAERS Safety Report 7225028-8 (Version None)
Quarter: 2011Q1

REPORT INFORMATION
  Report Type: 
  Country: None (occurrence: None)
  Receive Date: 20110113
  Receipt Date: 20101222
  Transmission Date: 20110831
  Serious: No
  Sender: FDA-Public Use
  Company Number: US-B.I. PHARMACEUTICALS,INC./RIDGEFIELD-2010-BP-15338BP

PATIENT
  Sex: Female

DRUGS (5)
  1. METOPROLOL [Concomitant]
     Indication: HYPERTENSION
  2. ARIMIDEX [Concomitant]
     Indication: BREAST CANCER
  3. OMEPRAZOLE [Concomitant]
     Indication: DYSPEPSIA
  4. PRADAXA [Suspect]
     Indication: ATRIAL FIBRILLATION
     Dosage: 300 MG
     Route: 048
     Dates: start: 20101212
  5. MULTIVITAMIN [Concomitant]
     Indication: PROPHYLAXIS

REACTIONS (1)
  - NASOPHARYNGITIS [None]
